FAERS Safety Report 7522397-6 (Version None)
Quarter: 2011Q2

REPORT INFORMATION
  Report Type: 
  Country: None (occurrence: None)
  Receive Date: 20110603
  Receipt Date: 20110519
  Transmission Date: 20111010
  Serious: Yes (Other)
  Sender: FDA-Public Use
  Company Number: GB-JNJFOC-20110412491

PATIENT
  Sex: Male
  Weight: 82 kg

DRUGS (3)
  1. INFLIXIMAB, RECOMBINANT [Suspect]
     Route: 042
     Dates: start: 20010517, end: 20100507
  2. METHOTREXATE [Concomitant]
     Dates: start: 20010517
  3. INFLIXIMAB, RECOMBINANT [Suspect]
     Indication: RHEUMATOID ARTHRITIS
     Route: 042
     Dates: start: 20110204

REACTIONS (2)
  - PROSTATE CANCER [None]
  - GASTROINTESTINAL CARCINOMA [None]
